FAERS Safety Report 10445722 (Version 2)
Quarter: 2014Q4

REPORT INFORMATION
  Report Type: Report from Study
  Country: JP (occurrence: JP)
  Receive Date: 20140910
  Receipt Date: 20141218
  Transmission Date: 20150528
  Serious: Yes (Disabling)
  Sender: FDA-Public Use
  Company Number: JP-AMGEN-JPNCT2014068559

PATIENT
  Sex: Male
  Weight: 53 kg

DRUGS (10)
  1. EURODIN                            /00401202/ [Concomitant]
     Dosage: 1 DF, QD
     Route: 048
     Dates: start: 20140421
  2. VITAMEDIN                          /00274301/ [Concomitant]
     Dosage: 75 MG, QD
     Route: 048
  3. LASIX [Concomitant]
     Active Substance: FUROSEMIDE
     Dosage: 20 MG, QD
     Route: 048
     Dates: start: 20140328
  4. PURSENNID                          /00142207/ [Concomitant]
     Active Substance: SENNOSIDES A AND B
     Dosage: 2 DF, QD
     Route: 048
  5. LANIRAPID [Concomitant]
     Active Substance: METILDIGOXIN
     Dosage: 0.1 MG, QD
     Route: 048
     Dates: start: 20140328
  6. APORASNON [Concomitant]
     Active Substance: SPIRONOLACTONE
     Dosage: 0.5 DF, QD
     Route: 048
     Dates: start: 20140328
  7. LOXOPROFEN [Concomitant]
     Active Substance: LOXOPROFEN
     Dosage: 180 MG, QD
     Route: 048
  8. AMIYU                              /02028601/ [Concomitant]
     Dosage: 3 DF, QD
     Route: 048
     Dates: start: 20140720
  9. DENOSUMAB [Suspect]
     Active Substance: DENOSUMAB
     Indication: OSTEOPOROSIS
     Dosage: 60 MG, UNK
     Route: 058
     Dates: start: 20140210, end: 20140210
  10. DENOTAS [Concomitant]
     Active Substance: CALCIUM CARBONATE\CHOLECALCIFEROL\MAGNESIUM CARBONATE
     Dosage: 2 DF, QD
     Route: 048
     Dates: start: 20140210, end: 20140507

REACTIONS (3)
  - Blood creatinine increased [Not Recovered/Not Resolved]
  - Oedema peripheral [Not Recovered/Not Resolved]
  - Peptic ulcer haemorrhage [Recovering/Resolving]

NARRATIVE: CASE EVENT DATE: 20140224
